FAERS Safety Report 23165719 (Version 1)
Quarter: 2023Q4

REPORT INFORMATION
  Report Type: Spontaneous
  Country: US (occurrence: US)
  Receive Date: 20231109
  Receipt Date: 20231109
  Transmission Date: 20240110
  Serious: No
  Sender: FDA-Public Use
  Company Number: US-BIOCRYST PHARMACEUTICALS, INC.-2023BCR00851

PATIENT
  Sex: Female

DRUGS (3)
  1. ORLADEYO [Suspect]
     Active Substance: BEROTRALSTAT HYDROCHLORIDE
     Indication: Hereditary angioedema
     Dosage: 150 MG, QD
     Route: 048
     Dates: start: 20230325, end: 2023
  2. ANTIHISTAMINES NOS [Concomitant]
     Active Substance: ANTIHISTAMINES NOS
     Indication: Rhinitis allergic
     Dosage: UNK, PRN
  3. ICATIBANT [Concomitant]
     Active Substance: ICATIBANT ACETATE
     Indication: Hereditary angioedema
     Dosage: UNK, PRN

REACTIONS (3)
  - Back pain [Recovered/Resolved]
  - Gastrointestinal disorder [Recovered/Resolved]
  - Pain [Recovered/Resolved]

NARRATIVE: CASE EVENT DATE: 20230101
